FAERS Safety Report 9792217 (Version 3)
Quarter: 2014Q3

REPORT INFORMATION
  Report Type: Spontaneous
  Country: US (occurrence: None)
  Receive Date: 20131230
  Receipt Date: 20140703
  Transmission Date: 20150326
  Serious: Yes (Other)
  Sender: FDA-Public Use
  Company Number: KAD201312-001740

PATIENT
  Age: 58 Year
  Sex: Male
  Weight: 81.63 kg

DRUGS (3)
  1. RIBASPHERE RIBAPAK [Suspect]
     Active Substance: RIBAVIRIN
     Indication: HEPATITIS C
     Dosage: 600 MG IN MORNING AND 600 MG IN EVENING
     Route: 048
     Dates: start: 20131101, end: 20131219
  2. INCIVEK [Suspect]
     Active Substance: TELAPREVIR
     Indication: HEPATITIS C
     Dates: start: 20131101, end: 20131106
  3. PEGASYS [Suspect]
     Active Substance: PEGINTERFERON ALFA-2A
     Indication: HEPATITIS C
     Dosage: INJECTION, ONCE DAILY
     Route: 058
     Dates: start: 20131031, end: 20131219

REACTIONS (3)
  - Rash [None]
  - Haemorrhoids [None]
  - Anaemia [None]

NARRATIVE: CASE EVENT DATE: 201311
